FAERS Safety Report 9321471 (Version 1)
Quarter: 2013Q2

REPORT INFORMATION
  Report Type: Spontaneous
  Country: US (occurrence: None)
  Receive Date: 20130528
  Receipt Date: 20130528
  Transmission Date: 20140414
  Serious: Yes (Hospitalization, Other)
  Sender: FDA-Public Use
  Company Number: US-ZYDUS-001193

PATIENT
  Age: 58 Year
  Sex: Male

DRUGS (1)
  1. WARFARIN (WARFARIN) [Suspect]

REACTIONS (2)
  - Gastrointestinal haemorrhage [None]
  - Post procedural complication [None]
